FAERS Safety Report 5380516-4 (Version None)
Quarter: 2007Q3

REPORT INFORMATION
  Report Type: 
  Country: None (occurrence: None)
  Receive Date: 20070706
  Receipt Date: 20070627
  Transmission Date: 20080115
  Serious: Yes (Other)
  Sender: FDA-Public Use
  Company Number: PHFR2007GB01882

PATIENT
  Sex: Female

DRUGS (5)
  1. RECLAST [Suspect]
     Indication: OSTEITIS DEFORMANS
     Dosage: 4MG
     Dates: start: 20070607
  2. LANSOPRAZOLE [Concomitant]
     Dosage: 15MG / DAY
     Route: 048
  3. INDAPAMIDE [Concomitant]
     Route: 048
  4. VALSARTAN [Concomitant]
     Dosage: 40MG / DAY
     Route: 048
  5. CLIMAVAL [Concomitant]
     Route: 048

REACTIONS (9)
  - ARTHRALGIA [None]
  - ARTHRITIS REACTIVE [None]
  - INFLUENZA LIKE ILLNESS [None]
  - JOINT EFFUSION [None]
  - JOINT SWELLING [None]
  - JOINT WARMTH [None]
  - NAUSEA [None]
  - ORAL PAIN [None]
  - PYREXIA [None]
